FAERS Safety Report 9310776 (Version 1)
Quarter: 2013Q2

REPORT INFORMATION
  Report Type: Spontaneous
  Country: US (occurrence: US)
  Receive Date: 20130528
  Receipt Date: 20130528
  Transmission Date: 20140414
  Serious: Yes (Hospitalization)
  Sender: FDA-Public Use
  Company Number: US-009507513-1305USA014077

PATIENT
  Age: 55 Year
  Sex: Male

DRUGS (2)
  1. PEGINTRON [Suspect]
     Indication: HEPATITIS C
     Dosage: 0.4 ML, QW REDIPEN
     Route: 058
     Dates: start: 201304, end: 201305
  2. REBETOL [Suspect]
     Indication: HEPATITIS C
     Dosage: 600 MG, BID
     Route: 048
     Dates: start: 201304, end: 201305

REACTIONS (3)
  - Anaemia [Recovering/Resolving]
  - Overdose [Unknown]
  - Malaise [Unknown]
